FAERS Safety Report 14332912 (Version 2)
Quarter: 2018Q1

REPORT INFORMATION
  Report Type: Spontaneous
  Country: US (occurrence: US)
  Receive Date: 20171228
  Receipt Date: 20180130
  Transmission Date: 20180509
  Serious: Yes (Other)
  Sender: FDA-Public Use
  Company Number: US-BAUSCH-BL-2017-035145

PATIENT
  Sex: Female

DRUGS (2)
  1. ATIVAN [Suspect]
     Active Substance: LORAZEPAM
     Indication: SCHIZOPHRENIA
     Route: 065
  2. ATIVAN [Suspect]
     Active Substance: LORAZEPAM
     Indication: INITIAL INSOMNIA

REACTIONS (6)
  - Tremor [Not Recovered/Not Resolved]
  - Cerebrovascular accident [Recovered/Resolved]
  - Amnesia [Not Recovered/Not Resolved]
  - Dyskinesia [Recovered/Resolved]
  - Off label use [Not Recovered/Not Resolved]
  - Musculoskeletal stiffness [Not Recovered/Not Resolved]
